FAERS Safety Report 17043143 (Version 1)
Quarter: 2019Q4

REPORT INFORMATION
  Report Type: Spontaneous
  Country: US (occurrence: US)
  Receive Date: 20191115
  Receipt Date: 20191115
  Transmission Date: 20200122
  Serious: No
  Sender: FDA-Public Use
  Company Number: None

PATIENT
  Age: 31 Year
  Sex: Male
  Weight: 119.25 kg

DRUGS (1)
  1. STOOL SOFTENER WITH STIMULANT LAXATIVE [Suspect]
     Active Substance: DOCUSATE SODIUM\SENNOSIDES
     Indication: BOWEL MOVEMENT IRREGULARITY
     Dosage: ?          QUANTITY:3 TABLET(S);OTHER FREQUENCY:2-4 TABS DAILY;?
     Route: 048

REACTIONS (1)
  - Constipation [None]

NARRATIVE: CASE EVENT DATE: 20190814
